FAERS Safety Report 9227258 (Version 1)
Quarter: 2013Q1

REPORT INFORMATION
  Report Type: Spontaneous
  Country: US (occurrence: None)
  Receive Date: 20120914
  Receipt Date: 20120914
  Transmission Date: 20140127
  Serious: Yes (Other)
  Sender: FDA-Public Use
  Company Number: JPI-P-019290

PATIENT
  Age: 69 Year
  Sex: Female

DRUGS (1)
  1. XYREM(500 MILLIGRAM/MILLILITERS, SOLUTION)(SODIUM OXYBATE) [Suspect]
     Indication: CATAPLEXY
     Dosage: 4.5G, (2.25 GM, 2 IN 1 D), ORAL
     Route: 048
     Dates: start: 20111201

REACTIONS (2)
  - Hypertension [None]
  - Erythema [None]
